FAERS Safety Report 24786950 (Version 3)
Quarter: 2025Q1

REPORT INFORMATION
  Report Type: Spontaneous
  Country: JP (occurrence: JP)
  Receive Date: 20241230
  Receipt Date: 20250127
  Transmission Date: 20250408
  Serious: Yes (Other)
  Sender: AMGEN
  Company Number: JP-KYOWAKIRIN-2024KK028743

PATIENT
  Age: 84 Year
  Sex: Female

DRUGS (3)
  1. CINACALCET HYDROCHLORIDE [Suspect]
     Active Substance: CINACALCET HYDROCHLORIDE
     Indication: Hyperparathyroidism secondary
     Route: 048
  2. EVOCALCET [Suspect]
     Active Substance: EVOCALCET
     Indication: Hyperparathyroidism secondary
     Route: 048
  3. EVOCALCET [Suspect]
     Active Substance: EVOCALCET
     Dosage: 2 MG, QD, AFTER BREAKFAST
     Route: 048

REACTIONS (2)
  - Dementia [Unknown]
  - Incorrect dosage administered [Unknown]
